FAERS Safety Report 6816417-1 (Version None)
Quarter: 2010Q3

REPORT INFORMATION
  Report Type: 
  Country: None (occurrence: None)
  Receive Date: 20100705
  Receipt Date: 20100705
  Transmission Date: 20110219
  Serious: Yes (Hospitalization)
  Sender: FDA-Public Use
  Company Number: PHHO2009FR07571

PATIENT
  Sex: Female
  Weight: 40 kg

DRUGS (2)
  1. PLACEBO COMP-PLA+ [Suspect]
     Indication: PANCREATIC NEUROENDOCRINE TUMOUR
     Dosage: PLACEBO
     Route: 048
     Dates: start: 20090128, end: 20090227
  2. RAD001 [Suspect]
     Indication: PANCREATIC NEUROENDOCRINE TUMOUR
     Dosage: UNBLINDED
     Route: 048
     Dates: start: 20090228

REACTIONS (3)
  - METASTASES TO BONE [None]
  - PAIN [None]
  - SPINAL DISORDER [None]
